FAERS Safety Report 10166674 (Version 1)
Quarter: 2014Q2

REPORT INFORMATION
  Report Type: Spontaneous
  Country: US (occurrence: None)
  Receive Date: 20140509
  Receipt Date: 20140509
  Transmission Date: 20141212
  Serious: Yes (Life-Threatening)
  Sender: FDA-Public Use
  Company Number: None

PATIENT
  Age: 72 Year
  Sex: Female
  Weight: 78 kg

DRUGS (22)
  1. BRENTUXIMAB VEDOLIN [Suspect]
     Indication: HODGKIN^S DISEASE
     Dosage: 1.8 MG/KG, TOTAL DOSE 130 MG ?ONCE IV
     Route: 042
     Dates: start: 20140403
  2. BRENTUXIMAB VEDOLIN [Suspect]
     Indication: DISEASE RECURRENCE
     Dosage: 1.8 MG/KG, TOTAL DOSE 130 MG ?ONCE IV
     Route: 042
     Dates: start: 20140403
  3. CETIRIZINE [Concomitant]
  4. ACETAMINOPHEN [Concomitant]
  5. KCI [Concomitant]
  6. VENTOLIN [Concomitant]
  7. TRICOR [Concomitant]
  8. DIAZEPAM [Concomitant]
  9. TRICOR [Concomitant]
  10. DIAZEPAM [Concomitant]
  11. FLUTICASONE/SALMETEROL [Concomitant]
  12. GUAIFENESIN [Concomitant]
  13. CELEXA [Concomitant]
  14. MEPROBAMATE [Concomitant]
  15. ALLOPURINOL [Concomitant]
  16. OXYCODONE [Concomitant]
  17. MULTIVITAMIN [Concomitant]
  18. HYDROXYZINE [Concomitant]
  19. RAGLAN [Concomitant]
  20. BUPROPION [Concomitant]
  21. OMEPRAZOLE [Concomitant]
  22. LYRICS [Concomitant]

REACTIONS (2)
  - Pancreatitis [None]
  - Pseudocyst [None]
